FAERS Safety Report 14538741 (Version 1)
Quarter: 2018Q1

REPORT INFORMATION
  Report Type: Spontaneous
  Country: US (occurrence: US)
  Receive Date: 20180216
  Receipt Date: 20180216
  Transmission Date: 20180509
  Serious: Yes (Disabling)
  Sender: FDA-Public Use
  Company Number: US-ACCORD-063305

PATIENT
  Age: 75 Year
  Sex: Male
  Weight: 109.77 kg

DRUGS (1)
  1. HYDROCHLOROTHIAZIDE. [Suspect]
     Active Substance: HYDROCHLOROTHIAZIDE
     Indication: FLUID RETENTION
     Dosage: 25 MG ONCE DAILY
     Route: 048
     Dates: start: 20171226

REACTIONS (5)
  - Dry mouth [Unknown]
  - Constipation [Unknown]
  - Gait inability [Unknown]
  - Dehydration [Unknown]
  - Muscular weakness [Unknown]
